FAERS Safety Report 8116268-4 (Version None)
Quarter: 2012Q1

REPORT INFORMATION
  Report Type: 
  Country: None (occurrence: None)
  Receive Date: 20120206
  Receipt Date: 20120130
  Transmission Date: 20120608
  Serious: No
  Sender: FDA-Public Use
  Company Number: US-B.I. PHARMACEUTICALS,INC./RIDGEFIELD-2012-BP-01807BP

PATIENT
  Sex: Female

DRUGS (1)
  1. PRADAXA [Suspect]
     Route: 048
     Dates: start: 20120106

REACTIONS (4)
  - VISION BLURRED [None]
  - RASH GENERALISED [None]
  - SWOLLEN TONGUE [None]
  - OEDEMA PERIPHERAL [None]
